FAERS Safety Report 5933747-6 (Version None)
Quarter: 2008Q4

REPORT INFORMATION
  Report Type: 
  Country: None (occurrence: None)
  Receive Date: 20081029
  Receipt Date: 20081020
  Transmission Date: 20090506
  Serious: Yes (Other)
  Sender: FDA-Public Use
  Company Number: US-ROCHE-592556

PATIENT
  Sex: Female

DRUGS (4)
  1. PEG-INTERFERON A-2A (RO 25-8310) [Suspect]
     Dosage: PRE FILLED SYRINGES
     Route: 065
     Dates: start: 20080418
  2. PEG-INTERFERON A-2A (RO 25-8310) [Suspect]
     Dosage: LOWERED DOSE
     Route: 065
     Dates: start: 20080801
  3. PEG-INTERFERON A-2A (RO 25-8310) [Suspect]
     Route: 065
     Dates: start: 20081007
  4. RIBAVIRIN [Suspect]
     Route: 065
     Dates: start: 20080418

REACTIONS (5)
  - APHONIA [None]
  - FULL BLOOD COUNT DECREASED [None]
  - INFLUENZA LIKE ILLNESS [None]
  - OROPHARYNGEAL PAIN [None]
  - PULMONARY HYPERTENSION [None]
